FAERS Safety Report 5356119-4 (Version None)
Quarter: 2007Q2

REPORT INFORMATION
  Report Type: 
  Country: None (occurrence: None)
  Receive Date: 20070613
  Receipt Date: 20070606
  Transmission Date: 20071010
  Serious: Yes (Death)
  Sender: FDA-Public Use
  Company Number: TW-ROXANE LABORATORIES, INC-2007-BP-07711RO

PATIENT
  Age: 28 Year
  Sex: Female

DRUGS (3)
  1. METHOTREXATE [Suspect]
     Indication: T-CELL LYMPHOMA
     Dosage: 12 MG (8 SESSIONS)
     Route: 037
     Dates: start: 20040901
  2. CYTARABINE [Suspect]
     Indication: LYMPHOMA
     Dosage: 30 MG (8 SESSIONS)
     Route: 037
     Dates: start: 20040901
  3. HYDROCORTISONE [Suspect]
     Indication: LYMPHOMA
     Dosage: 24 MG (8 SESSIONS)
     Route: 037
     Dates: start: 20040901

REACTIONS (9)
  - DYSURIA [None]
  - FAECAL INCONTINENCE [None]
  - INFECTION [None]
  - MUSCULAR WEAKNESS [None]
  - MYELOPATHY [None]
  - PARAESTHESIA [None]
  - SENSORY LOSS [None]
  - SEPTIC SHOCK [None]
  - URINARY INCONTINENCE [None]
